FAERS Safety Report 4899561-8 (Version None)
Quarter: 2006Q1

REPORT INFORMATION
  Report Type: 
  Country: None (occurrence: None)
  Receive Date: 20060130
  Receipt Date: 20060117
  Transmission Date: 20060701
  Serious: Yes (Disabling, Other)
  Sender: FDA-Public Use
  Company Number: 2005159958

PATIENT
  Age: 54 Year
  Sex: Female
  Weight: 73 kg

DRUGS (8)
  1. NEURONTIN [Suspect]
     Indication: NEURALGIA
     Dosage: 900 MG (300 MG, 3 IN 1 D), ORAL
     Route: 048
     Dates: start: 20051001
  2. NEURONTIN [Suspect]
     Indication: PAIN IN EXTREMITY
     Dosage: 900 MG (300 MG, 3 IN 1 D), ORAL
     Route: 048
     Dates: start: 20051001
  3. DIHYDROCODRINE (DIHYDROCODEINE) [Concomitant]
  4. BACLOFEN [Concomitant]
  5. VENLAFAXINE HCL [Concomitant]
  6. TOLTERODINE TARTRATE [Concomitant]
  7. SALBUTAMOL (SALBUTAMOL) [Concomitant]
  8. CARBAMAZEPINE [Concomitant]

REACTIONS (3)
  - TOOTH DISORDER [None]
  - TOOTH FRACTURE [None]
  - TOOTH LOSS [None]
